FAERS Safety Report 5948500-7 (Version None)
Quarter: 2008Q4

REPORT INFORMATION
  Report Type: 
  Country: None (occurrence: None)
  Receive Date: 20081111
  Receipt Date: 20081031
  Transmission Date: 20090506
  Serious: Yes (Hospitalization)
  Sender: FDA-Public Use
  Company Number: B0544515A

PATIENT
  Age: 51 Year
  Sex: Female

DRUGS (4)
  1. AUGMENTIN '125' [Suspect]
     Indication: ENDOCARDITIS PROPHYLAXIS
     Dosage: 2G SINGLE DOSE
     Route: 042
     Dates: start: 20051114, end: 20051114
  2. SUFENTA PRESERVATIVE FREE [Concomitant]
     Indication: COLONOSCOPY
     Route: 065
     Dates: start: 20051114, end: 20051114
  3. HYPNOVEL [Concomitant]
     Indication: COLONOSCOPY
     Route: 065
     Dates: start: 20051114, end: 20051114
  4. KETALAR [Concomitant]
     Indication: COLONOSCOPY
     Route: 065
     Dates: start: 20051114, end: 20051114

REACTIONS (6)
  - ANAPHYLACTIC SHOCK [None]
  - BLOOD PRESSURE DECREASED [None]
  - ERYTHEMA [None]
  - ILL-DEFINED DISORDER [None]
  - PALLOR [None]
  - RESPIRATORY DISORDER [None]
